FAERS Safety Report 8965539 (Version 1)
Quarter: 2012Q4

REPORT INFORMATION
  Report Type: Spontaneous
  Country: US (occurrence: None)
  Receive Date: 20121212
  Receipt Date: 20121212
  Transmission Date: 20130627
  Serious: No
  Sender: FDA-Public Use
  Company Number: None

PATIENT
  Sex: Female

DRUGS (2)
  1. GABAPENTIN [Suspect]
     Indication: SEIZURE
     Dosage: 600 mg ii BID oral
     Route: 048
  2. CARBAMAZEPINE 200 MG APOTEX [Suspect]
     Dosage: 200 mg ii TID oral
     Route: 048

REACTIONS (3)
  - Product substitution issue [None]
  - Convulsion [None]
  - Condition aggravated [None]
